FAERS Safety Report 10654045 (Version 1)
Quarter: 2014Q4

REPORT INFORMATION
  Report Type: Spontaneous
  Country: US (occurrence: None)
  Receive Date: 20141215
  Receipt Date: 20141215
  Transmission Date: 20150529
  Serious: Yes (Hospitalization, Other)
  Sender: FDA-Public Use
  Company Number: None

PATIENT
  Age: 42 Year
  Sex: Female
  Weight: 111 kg

DRUGS (11)
  1. FENOFIBRATE. [Concomitant]
     Active Substance: FENOFIBRATE
  2. DAPTOMYCIN 500 MG CUBIST PHARMACEUTICALS [Suspect]
     Active Substance: DAPTOMYCIN
     Indication: OSTEOMYELITIS
     Route: 042
     Dates: start: 20141111, end: 20141118
  3. SUCCINULCHOLINE [Concomitant]
  4. PROTAMINE [Concomitant]
     Active Substance: PROTAMINE
  5. METOPROLOL [Concomitant]
     Active Substance: METOPROLOL
  6. AMLODIPINE [Concomitant]
     Active Substance: AMLODIPINE BESYLATE
  7. CLONIDINE. [Concomitant]
     Active Substance: CLONIDINE
  8. LISPRO [Concomitant]
     Active Substance: INSULIN LISPRO
  9. HUMALOG [Concomitant]
     Active Substance: INSULIN LISPRO
  10. LASIX [Concomitant]
     Active Substance: FUROSEMIDE
  11. RIFAMPIN. [Concomitant]
     Active Substance: RIFAMPIN

REACTIONS (2)
  - Myalgia [None]
  - Rhabdomyolysis [None]

NARRATIVE: CASE EVENT DATE: 20141118
